FAERS Safety Report 4881156-3 (Version None)
Quarter: 2006Q1

REPORT INFORMATION
  Report Type: 
  Country: None (occurrence: None)
  Receive Date: 20060116
  Receipt Date: 20060104
  Transmission Date: 20060701
  Serious: Yes (Hospitalization)
  Sender: FDA-Public Use
  Company Number: FR-JNJFOC-20060102298

PATIENT
  Age: 71 Year
  Sex: Male

DRUGS (3)
  1. REOPRO [Suspect]
     Indication: THROMBOSIS PROPHYLAXIS
     Route: 042
  2. HEPARIN [Suspect]
     Indication: THROMBOSIS PROPHYLAXIS
  3. CLOPIDOGREL [Suspect]
     Indication: THROMBOSIS PROPHYLAXIS

REACTIONS (8)
  - ADRENAL CORTICAL INSUFFICIENCY [None]
  - GASTROINTESTINAL HAEMORRHAGE [None]
  - HYPOTENSION [None]
  - LIVEDO RETICULARIS [None]
  - MALLORY-WEISS SYNDROME [None]
  - PROCTITIS [None]
  - RENAL FAILURE [None]
  - RESPIRATORY DISTRESS [None]
